FAERS Safety Report 5561911-7 (Version None)
Quarter: 2007Q4

REPORT INFORMATION
  Report Type: 
  Country: None (occurrence: None)
  Receive Date: 20071215
  Receipt Date: 20071004
  Transmission Date: 20080405
  Serious: No
  Sender: FDA-Public Use
  Company Number: US-AMGEN-KDL246661

PATIENT
  Sex: Female

DRUGS (2)
  1. ENBREL [Suspect]
     Indication: PSORIATIC ARTHROPATHY
     Route: 058
     Dates: start: 20070912
  2. ENBREL [Suspect]
     Indication: PSORIASIS

REACTIONS (5)
  - CONTUSION [None]
  - PAIN [None]
  - SKIN HAEMORRHAGE [None]
  - SKIN NODULE [None]
  - SKIN WARM [None]
